FAERS Safety Report 13537684 (Version 4)
Quarter: 2019Q2

REPORT INFORMATION
  Report Type: Report from Study
  Country: CA (occurrence: CA)
  Receive Date: 20170511
  Receipt Date: 20190403
  Transmission Date: 20190711
  Serious: Yes (Life-Threatening, Hospitalization)
  Sender: FDA-Public Use
  Company Number: CA-ACTELION-A-NJ2017-150225

PATIENT
  Age: 70 Year
  Sex: Female
  Weight: 59.86 kg

DRUGS (15)
  1. TYLENOL WITH CODEINE [Concomitant]
     Active Substance: ACETAMINOPHEN\CODEINE PHOSPHATE
  2. VOLIBRIS [Concomitant]
     Active Substance: AMBRISENTAN
  3. OXYGEN. [Concomitant]
     Active Substance: OXYGEN
  4. SILDENAFIL. [Concomitant]
     Active Substance: SILDENAFIL
     Indication: PULMONARY ARTERIAL HYPERTENSION
  5. CARIPUL [Suspect]
     Active Substance: EPOPROSTENOL
     Dosage: UNK
     Route: 042
  6. OPSUMIT [Suspect]
     Active Substance: MACITENTAN
     Indication: PULMONARY HYPERTENSION
     Dosage: 10 MG, UNK
     Route: 048
     Dates: start: 20160620
  7. COENZYME Q10 [Concomitant]
     Active Substance: UBIDECARENONE
  8. LOSEC [Concomitant]
     Active Substance: OMEPRAZOLE
  9. SPIRONOLACTONE. [Concomitant]
     Active Substance: SPIRONOLACTONE
  10. MAGNESIUM [Concomitant]
     Active Substance: MAGNESIUM
     Dosage: UNK, PRN
  11. VITAMIN B [Concomitant]
     Active Substance: VITAMIN B
  12. L-ARGININE [Concomitant]
     Active Substance: ARGININE
  13. CARIPUL [Suspect]
     Active Substance: EPOPROSTENOL
     Indication: PULMONARY HYPERTENSION
     Dosage: UNK
     Route: 042
     Dates: start: 20150515
  14. FOLIC ACID. [Concomitant]
     Active Substance: FOLIC ACID
  15. LASIX [Concomitant]
     Active Substance: FUROSEMIDE

REACTIONS (9)
  - Device alarm issue [Recovered/Resolved]
  - Terminal state [Unknown]
  - Loss of personal independence in daily activities [Unknown]
  - Thrombosis in device [Unknown]
  - Oxygen therapy [Unknown]
  - Transient ischaemic attack [Unknown]
  - Malaise [Recovered/Resolved]
  - Loss of consciousness [Recovered/Resolved]
  - Right ventricular failure [Unknown]

NARRATIVE: CASE EVENT DATE: 20170502
